FAERS Safety Report 9639136 (Version 1)
Quarter: 2013Q4

REPORT INFORMATION
  Report Type: Spontaneous
  Country: US (occurrence: None)
  Receive Date: 20131021
  Receipt Date: 20131021
  Transmission Date: 20140711
  Serious: Yes (Hospitalization)
  Sender: FDA-Public Use
  Company Number: US-AIKEM-000187

PATIENT
  Age: 24 Year
  Sex: Female

DRUGS (2)
  1. AMLODIPINE [Suspect]
  2. SIMVASTATIN(SIMVASTATIN) [Suspect]

REACTIONS (12)
  - Hypotension [None]
  - Overdose [None]
  - Rhabdomyolysis [None]
  - Renal failure [None]
  - Renal tubular necrosis [None]
  - Lung infiltration [None]
  - Blood glucose increased [None]
  - Metabolic acidosis [None]
  - Respiratory rate increased [None]
  - Haemodialysis [None]
  - Staphylococcal infection [None]
  - Blood sodium increased [None]
